FAERS Safety Report 16895836 (Version 1)
Quarter: 2019Q4

REPORT INFORMATION
  Report Type: Spontaneous
  Country: US (occurrence: US)
  Receive Date: 20191008
  Receipt Date: 20191008
  Transmission Date: 20200122
  Serious: No
  Sender: FDA-Public Use
  Company Number: US-ASTRAZENECA-2019SF38893

PATIENT
  Age: 406 Day
  Sex: Male

DRUGS (2)
  1. SYNAGIS [Suspect]
     Active Substance: PALIVIZUMAB
     Indication: BLOOD PRESSURE DECREASED
     Dosage: 1.0DF UNKNOWN
     Route: 030
     Dates: start: 20190409
  2. SYNAGIS [Suspect]
     Active Substance: PALIVIZUMAB
     Indication: BLOOD PRESSURE DECREASED
     Dosage: 1.0DF UNKNOWN
     Route: 030
     Dates: start: 20190409

REACTIONS (1)
  - Ear infection [Unknown]

NARRATIVE: CASE EVENT DATE: 20190919
